FAERS Safety Report 17446724 (Version 1)
Quarter: 2020Q1

REPORT INFORMATION
  Report Type: Report from Study
  Country: TH (occurrence: TH)
  Receive Date: 20200221
  Receipt Date: 20200221
  Transmission Date: 20200409
  Serious: Yes (Death, Life-Threatening)
  Sender: FDA-Public Use
  Company Number: TH-ASTRAZENECA-2020SE25603

PATIENT
  Sex: Male

DRUGS (1)
  1. TAGRISSO [Suspect]
     Active Substance: OSIMERTINIB
     Indication: LUNG NEOPLASM MALIGNANT
     Route: 048
     Dates: start: 20190502

REACTIONS (4)
  - Metastatic neoplasm [Unknown]
  - Pneumonia [Fatal]
  - Tracheal disorder [Unknown]
  - Malignant neoplasm progression [Fatal]
